FAERS Safety Report 12689988 (Version 2)
Quarter: 2016Q3

REPORT INFORMATION
  Report Type: Spontaneous
  Country: BR (occurrence: BR)
  Receive Date: 20160826
  Receipt Date: 20160928
  Transmission Date: 20161109
  Serious: Yes (Other)
  Sender: FDA-Public Use
  Company Number: BR-SA-2016SA152457

PATIENT
  Sex: Female
  Weight: 63 kg

DRUGS (7)
  1. ENALAPRIL [Concomitant]
     Active Substance: ENALAPRIL
     Indication: RENAL DISORDER
     Dosage: STRENGTH: 5 MG
  2. BENERVA [Concomitant]
     Active Substance: THIAMINE
  3. GABAPENTIN. [Concomitant]
     Active Substance: GABAPENTIN
  4. LANTUS [Suspect]
     Active Substance: INSULIN GLARGINE
     Indication: DIABETES MELLITUS
     Route: 065
  5. PURAN [Concomitant]
     Active Substance: LEVOTHYROXINE SODIUM
     Indication: THYROID DISORDER
  6. AUBAGIO [Concomitant]
     Active Substance: TERIFLUNOMIDE
     Dosage: FASTING
     Dates: start: 201602
  7. NOVORAPID [Suspect]
     Active Substance: INSULIN ASPART
     Indication: DIABETES MELLITUS
     Dosage: ACCORDING TO HER GLYCAEMIA LEVEL, BUT IT WAS NO MORE THAN 2 IU BEFORE MEALS
     Route: 065

REACTIONS (1)
  - Diabetic neuropathy [Unknown]
